FAERS Safety Report 4995729-0 (Version None)
Quarter: 2006Q1

REPORT INFORMATION
  Report Type: 
  Country: None (occurrence: None)
  Receive Date: 20060315
  Receipt Date: 20060111
  Transmission Date: 20060701
  Serious: Yes (Other)
  Sender: FDA-Public Use
  Company Number: 431884

PATIENT
  Sex: Female

DRUGS (2)
  1. BONIVA [Suspect]
     Indication: DRUG USE FOR UNKNOWN INDICATION
  2. CALCIUM SUPPLEMENTS (CALCIUM) [Concomitant]

REACTIONS (1)
  - BLOOD CALCIUM INCREASED [None]
